FAERS Safety Report 17286176 (Version 5)
Quarter: 2020Q1

REPORT INFORMATION
  Report Type: Spontaneous
  Country: PL (occurrence: PL)
  Receive Date: 20200118
  Receipt Date: 20200220
  Transmission Date: 20200409
  Serious: Yes (Hospitalization, Other)
  Sender: FDA-Public Use
  Company Number: PL-AUROBINDO-AUR-APL-2020-001625

PATIENT
  Age: 25 Year
  Sex: Male

DRUGS (9)
  1. VANCOMYCIN [Suspect]
     Active Substance: VANCOMYCIN
     Indication: TINEA BARBAE
     Dosage: UNK,STARTED 4 DAYS PRIOR TO ERYTHEMA NODOSUM
     Route: 065
     Dates: start: 200910
  2. CEFTRIAXONE. [Suspect]
     Active Substance: CEFTRIAXONE
     Indication: TRICHOPHYTOSIS
  3. FLUCONAZOLE. [Suspect]
     Active Substance: FLUCONAZOLE
     Indication: TRICHOPHYTOSIS
     Dosage: 100 MILLIGRAM, ONCE A DAY
     Route: 042
     Dates: start: 200910
  4. AMOXICILLIN+CLAVULANIC ACID [Suspect]
     Active Substance: AMOXICILLIN\CLAVULANIC ACID
     Indication: TRICHOPHYTOSIS
     Dosage: 1.2 GRAM, TWO TIMES A DAY,STARTED FOR 8 DAYS
     Route: 042
     Dates: start: 200910
  5. KETOCONAZOLE. [Suspect]
     Active Substance: KETOCONAZOLE
     Indication: TINEA BARBAE
     Dosage: 100 MILLIGRAM
     Route: 065
  6. CEFTRIAXONE. [Suspect]
     Active Substance: CEFTRIAXONE
     Indication: TINEA BARBAE
     Dosage: 2 GRAM, ONCE A DAY
     Route: 042
     Dates: start: 200910
  7. TERBINAFINE 250MG [Suspect]
     Active Substance: TERBINAFINE
     Indication: TINEA BARBAE
     Dosage: 250 MILLIGRAM, ONCE A DAY,ACTION TAKEN: RECOMMENDED TO CONTINUE ORAL TERBINAFINE FOR 30 DAYS
     Route: 048
     Dates: start: 200910
  8. TERBINAFINE 250MG [Suspect]
     Active Substance: TERBINAFINE
     Indication: TRICHOPHYTOSIS
  9. VANCOMYCIN [Suspect]
     Active Substance: VANCOMYCIN
     Indication: TRICHOPHYTOSIS

REACTIONS (10)
  - Erythema nodosum [Recovering/Resolving]
  - White blood cell count increased [Recovering/Resolving]
  - Skin mass [Recovering/Resolving]
  - Drug ineffective [Unknown]
  - Dermatitis [Recovering/Resolving]
  - Platelet count increased [Recovering/Resolving]
  - C-reactive protein increased [Recovering/Resolving]
  - Abdominal pain [Recovering/Resolving]
  - Arthritis [Recovering/Resolving]
  - Pyrexia [Recovering/Resolving]

NARRATIVE: CASE EVENT DATE: 200910
